FAERS Safety Report 24117232 (Version 1)
Quarter: 2024Q3

REPORT INFORMATION
  Report Type: Report from Study
  Country: US (occurrence: None)
  Receive Date: 20240722
  Receipt Date: 20240722
  Transmission Date: 20241017
  Serious: Yes (Other)
  Sender: ASTRAZENECA
  Company Number: 2021A853460

PATIENT
  Sex: Female

DRUGS (1)
  1. LYNPARZA [Suspect]
     Active Substance: OLAPARIB
     Dosage: 100MG TAKE 2 TABLETS BY MOUTH TWICE DAILY.
     Route: 048

REACTIONS (2)
  - Amnesia [Unknown]
  - Asthenia [Unknown]
